FAERS Safety Report 6803940-9 (Version None)
Quarter: 2010Q2

REPORT INFORMATION
  Report Type: 
  Country: None (occurrence: None)
  Receive Date: 20100628
  Receipt Date: 20060515
  Transmission Date: 20101027
  Serious: No
  Sender: FDA-Public Use
  Company Number: US-PFIZER INC-2006046110

PATIENT
  Sex: Male
  Weight: 88 kg

DRUGS (7)
  1. SU-011,248 [Suspect]
     Indication: RENAL CELL CARCINOMA
     Route: 065
     Dates: start: 20060319, end: 20060401
  2. LOTREL [Suspect]
     Indication: BLOOD PRESSURE
     Route: 065
  3. PLAVIX [Suspect]
     Indication: CARDIAC DISORDER
     Route: 065
  4. ASPIRIN [Suspect]
     Indication: CARDIAC DISORDER
     Route: 065
  5. MAXZIDE [Suspect]
     Indication: POLYURIA
     Route: 065
  6. TOPROL-XL [Suspect]
     Indication: BLOOD PRESSURE
     Route: 065
  7. METRONIDAZOLE [Suspect]
     Indication: DIVERTICULITIS
     Route: 065

REACTIONS (5)
  - DECREASED APPETITE [None]
  - DIARRHOEA [None]
  - DIVERTICULITIS [None]
  - MALAISE [None]
  - NAUSEA [None]
